FAERS Safety Report 24066890 (Version 1)
Quarter: 2024Q3

REPORT INFORMATION
  Report Type: Spontaneous
  Country: GB (occurrence: GB)
  Receive Date: 20240709
  Receipt Date: 20240709
  Transmission Date: 20241017
  Serious: Yes (Other)
  Sender: MYLAN
  Company Number: None

PATIENT
  Sex: Female
  Weight: 56 kg

DRUGS (9)
  1. DOXAZOSIN [Suspect]
     Active Substance: DOXAZOSIN MESYLATE
     Indication: Hypertension
     Dosage: 1 MILLIGRAM, UNK
     Route: 065
     Dates: start: 20170327
  2. DOXAZOSIN [Suspect]
     Active Substance: DOXAZOSIN MESYLATE
     Dosage: 2 MILLIGRAM, UNK
     Route: 065
     Dates: start: 2019
  3. DOXAZOSIN [Suspect]
     Active Substance: DOXAZOSIN MESYLATE
     Dosage: 4 MILLIGRAM, UNK
     Route: 065
     Dates: start: 20240423, end: 20240423
  4. DOXAZOSIN [Suspect]
     Active Substance: DOXAZOSIN MESYLATE
     Dosage: 8 MILLIGRAM, UNK
     Route: 065
     Dates: start: 20240424, end: 20240425
  5. DOXAZOSIN [Suspect]
     Active Substance: DOXAZOSIN MESYLATE
     Dosage: 12 MILLIGRAM, QD (AT NIGHT)
     Route: 065
     Dates: start: 20240426, end: 20240502
  6. AMIODARONE [Concomitant]
     Active Substance: AMIODARONE
     Indication: Atrial fibrillation
     Dosage: UNK
     Route: 065
  7. APIXABAN [Concomitant]
     Active Substance: APIXABAN
     Indication: Atrial fibrillation
     Dosage: UNK
     Route: 065
  8. BISOPROLOL [Concomitant]
     Active Substance: BISOPROLOL\BISOPROLOL FUMARATE
     Indication: Atrial fibrillation
     Dosage: UNK
     Route: 065
  9. LISINOPRIL [Concomitant]
     Active Substance: LISINOPRIL
     Indication: Hypertension
     Dosage: UNK
     Route: 065

REACTIONS (2)
  - Tremor [Recovered/Resolved]
  - Dizziness [Recovered/Resolved]
